FAERS Safety Report 5964210-4 (Version None)
Quarter: 2008Q4

REPORT INFORMATION
  Report Type: 
  Country: None (occurrence: None)
  Receive Date: 20081124
  Receipt Date: 20081117
  Transmission Date: 20090506
  Serious: Yes (Death)
  Sender: FDA-Public Use
  Company Number: US-GILEAD-2008-0019051

PATIENT
  Sex: Male
  Weight: 90.8 kg

DRUGS (11)
  1. LETAIRIS [Suspect]
     Indication: PULMONARY ARTERIAL HYPERTENSION
     Route: 048
     Dates: start: 20080128
  2. REVATIO [Concomitant]
  3. ATENOLOL [Concomitant]
  4. LASIX [Concomitant]
  5. LISINOPRIL [Concomitant]
  6. GLIPIZIDE [Concomitant]
  7. JANUVIA [Concomitant]
  8. ZANTAC [Concomitant]
  9. ASCORBIC ACID [Concomitant]
  10. FISH OIL [Concomitant]
  11. MULTI-VITAMIN [Concomitant]

REACTIONS (1)
  - DEATH [None]
